FAERS Safety Report 20769468 (Version 1)
Quarter: 2022Q2

REPORT INFORMATION
  Report Type: Spontaneous
  Country: US (occurrence: None)
  Receive Date: 20220429
  Receipt Date: 20220429
  Transmission Date: 20220720
  Serious: No
  Sender: FDA-Public Use
  Company Number: None

PATIENT
  Age: 24 Year
  Sex: Male
  Weight: 83.87 kg

DRUGS (2)
  1. STELARA [Suspect]
     Active Substance: USTEKINUMAB
     Indication: Crohn^s disease
  2. STELARA [Concomitant]
     Active Substance: USTEKINUMAB

REACTIONS (6)
  - Device malfunction [None]
  - Device mechanical issue [None]
  - Injection site pain [None]
  - Procedural pain [None]
  - Product complaint [None]
  - Injury associated with device [None]

NARRATIVE: CASE EVENT DATE: 20220410
